FAERS Safety Report 22400682 (Version 7)
Quarter: 2024Q2

REPORT INFORMATION
  Report Type: Report from Study
  Country: CN (occurrence: CN)
  Receive Date: 20230602
  Receipt Date: 20240514
  Transmission Date: 20240716
  Serious: Yes (Other)
  Sender: FDA-Public Use
  Company Number: CN-TAKEDA-2023TUS054064

PATIENT
  Age: 44 Year
  Sex: Male
  Weight: 59 kg

DRUGS (8)
  1. VEDOLIZUMAB [Suspect]
     Active Substance: VEDOLIZUMAB
     Indication: Colitis ulcerative
     Dosage: 300 MILLIGRAM
     Route: 042
     Dates: start: 20221102
  2. CALCIUM CARBONATE [Concomitant]
     Active Substance: CALCIUM CARBONATE
     Indication: Osteoporosis prophylaxis
     Dosage: 500 MILLIGRAM, TID
     Route: 048
     Dates: start: 20221019
  3. BACILLUS LICHENIFORMIS CAPSULE,LIVE [Concomitant]
     Indication: Inflammatory bowel disease
     Dosage: UNK
     Dates: start: 2014
  4. BACILLUS LICHENIFORMIS CAPSULE,LIVE [Concomitant]
     Dosage: 0.5 GRAM, TID
     Route: 048
     Dates: start: 20221019
  5. PENTASA [Concomitant]
     Active Substance: MESALAMINE
     Indication: Inflammatory bowel disease
     Dosage: 1 GRAM, QD
     Route: 054
     Dates: start: 20230328
  6. LIVE COMBINED BIFIDOBACTERIUM, LACTOBACILUS AND ENTEROCOCCUS [Concomitant]
     Indication: Inflammatory bowel disease
     Dosage: 420 MILLIGRAM, TID
     Route: 048
     Dates: start: 20221020
  7. PREDNISONE [Concomitant]
     Active Substance: PREDNISONE
     Indication: Inflammatory bowel disease
     Dosage: 50 MILLIGRAM, QD
     Route: 048
     Dates: start: 20221027, end: 20230328
  8. MESALAMINE [Concomitant]
     Active Substance: MESALAMINE
     Indication: Inflammatory bowel disease
     Dosage: 1000 MILLIGRAM, QID
     Route: 048
     Dates: start: 20221020

REACTIONS (3)
  - Colitis ulcerative [Not Recovered/Not Resolved]
  - Gynaecomastia [Recovered/Resolved]
  - Breast pain [Recovered/Resolved]

NARRATIVE: CASE EVENT DATE: 20230404
